FAERS Safety Report 26139098 (Version 1)
Quarter: 2025Q4

REPORT INFORMATION
  Report Type: Report from Study
  Country: EU (occurrence: EU)
  Receive Date: 20251210
  Receipt Date: 20251210
  Transmission Date: 20260117
  Serious: Yes (Hospitalization, Other)
  Sender: TAKEDA
  Company Number: EU-TAKEDA-2025TUS110198

PATIENT
  Sex: Male
  Weight: 96.9 kg

DRUGS (7)
  1. FRUQUINTINIB [Suspect]
     Active Substance: FRUQUINTINIB
     Indication: Colorectal cancer metastatic
     Dosage: 5 MILLIGRAM
  2. Amlodipin valsartan beta [Concomitant]
     Indication: Hypertension
     Dosage: 5 MILLIGRAM, BID
     Dates: start: 201801
  3. BISOPROLOL [Concomitant]
     Active Substance: BISOPROLOL
     Indication: Hypertension
     Dosage: 10 MILLIGRAM, BID
     Dates: start: 201801
  4. METAMIZOLE [Concomitant]
     Active Substance: METAMIZOLE
     Indication: Prophylaxis
     Dosage: 500 MILLIGRAM
  5. CETIRIZINE [Concomitant]
     Active Substance: CETIRIZINE HYDROCHLORIDE
     Indication: Prophylaxis
     Dosage: 10 MILLIGRAM
  6. NITROGLYCERIN [Concomitant]
     Active Substance: NITROGLYCERIN
     Indication: Hypertension
     Dosage: 0.4 MILLIGRAM
  7. Hydrochlorothiazide, Candesartan [Concomitant]
     Indication: Hypertension
     Dosage: 16 MILLIGRAM, QD
     Dates: start: 202404

REACTIONS (1)
  - Osteomyelitis [Recovering/Resolving]

NARRATIVE: CASE EVENT DATE: 20251122
